FAERS Safety Report 6054687-0 (Version None)
Quarter: 2009Q1

REPORT INFORMATION
  Report Type: 
  Country: None (occurrence: None)
  Receive Date: 20090128
  Receipt Date: 20090121
  Transmission Date: 20090719
  Serious: Yes (Hospitalization)
  Sender: FDA-Public Use
  Company Number: FR-WYE-G02982009

PATIENT
  Sex: Female
  Weight: 70 kg

DRUGS (9)
  1. EFFEXOR [Suspect]
     Indication: DEPRESSION
     Route: 048
     Dates: start: 20081008, end: 20081030
  2. MODOPAR [Suspect]
     Route: 048
     Dates: end: 20081021
  3. COZAAR [Concomitant]
     Route: 048
     Dates: start: 20010101
  4. RISPERDAL [Suspect]
     Route: 048
     Dates: start: 20081021, end: 20081030
  5. LEVOTHYROX [Suspect]
     Indication: HYPOTHYROIDISM
     Route: 048
     Dates: end: 20081101
  6. LEVOTHYROX [Suspect]
     Route: 048
     Dates: start: 20081101
  7. BAYPRESS [Concomitant]
     Route: 048
  8. DEROXAT [Suspect]
     Indication: DEPRESSION
     Dosage: UNKNOWN
     Route: 048
     Dates: end: 20081008
  9. BROMAZEPAM [Suspect]
     Route: 048
     Dates: end: 20081021

REACTIONS (8)
  - ABNORMAL BEHAVIOUR [None]
  - CONFUSIONAL STATE [None]
  - DISORIENTATION [None]
  - FALL [None]
  - HALLUCINATION, VISUAL [None]
  - HEAD INJURY [None]
  - MANIA [None]
  - SUPRAVENTRICULAR EXTRASYSTOLES [None]
